FAERS Safety Report 4745018-4 (Version None)
Quarter: 2005Q3

REPORT INFORMATION
  Report Type: 
  Country: None (occurrence: None)
  Receive Date: 20050812
  Receipt Date: 20050812
  Transmission Date: 20060218
  Serious: Yes (Other)
  Sender: FDA-Public Use
  Company Number: None

PATIENT
  Age: 45 Year
  Sex: Male

DRUGS (2)
  1. VANCOMYCIN [Suspect]
     Dosage: 1GM Q 12 HOURS MB+
     Dates: start: 20050727, end: 20050807
  2. CUBICIN [Concomitant]

REACTIONS (4)
  - CHILLS [None]
  - PYREXIA [None]
  - RASH GENERALISED [None]
  - URTICARIA [None]
